FAERS Safety Report 24170024 (Version 3)
Quarter: 2024Q3

REPORT INFORMATION
  Report Type: Report from Study
  Country: DE (occurrence: DE)
  Receive Date: 20240803
  Receipt Date: 20240827
  Transmission Date: 20241017
  Serious: Yes (Other)
  Sender: JOHNSON AND JOHNSON
  Company Number: DE-JNJFOC-20240745427

PATIENT
  Age: 75 Year
  Sex: Female

DRUGS (1)
  1. SPRAVATO [Suspect]
     Active Substance: ESKETAMINE
     Indication: Depression
     Dosage: 56 MG (2 DEVICES), RECEIVED ON 18-JUL-2024, 22-JUL-2024, 25-JUL-2024, 29-JUL-2024
     Dates: start: 20240715, end: 20240801

REACTIONS (4)
  - Hallucination [Recovered/Resolved]
  - Sneezing [Recovered/Resolved]
  - Dyschromatopsia [Recovered/Resolved]
  - Dizziness [Recovered/Resolved]

NARRATIVE: CASE EVENT DATE: 20240715
